FAERS Safety Report 7078266-1 (Version None)
Quarter: 2010Q4

REPORT INFORMATION
  Report Type: 
  Country: None (occurrence: None)
  Receive Date: 20101101
  Receipt Date: 20101101
  Transmission Date: 20110411
  Serious: Yes (Hospitalization)
  Sender: FDA-Public Use
  Company Number: None

PATIENT
  Sex: Male
  Weight: 57.1986 kg

DRUGS (2)
  1. SUTENT [Suspect]
     Indication: GASTROINTESTINAL STROMAL TUMOUR
     Dosage: 25MG DAILY ORAL
     Route: 048
     Dates: start: 20080109, end: 20101028
  2. GLEEVEC [Suspect]
     Dosage: 200MG DAILY ORAL
     Route: 048
     Dates: start: 20080109, end: 20101028

REACTIONS (4)
  - DIARRHOEA [None]
  - NAUSEA [None]
  - SMALL INTESTINAL OBSTRUCTION [None]
  - VOMITING [None]
